FAERS Safety Report 7319030-5 (Version None)
Quarter: 2011Q1

REPORT INFORMATION
  Report Type: 
  Country: None (occurrence: None)
  Receive Date: 20110228
  Receipt Date: 20110221
  Transmission Date: 20110831
  Serious: Yes (Hospitalization)
  Sender: FDA-Public Use
  Company Number: GB-AMGEN-GBRCT2011009828

PATIENT
  Age: 64 Year
  Sex: Male

DRUGS (8)
  1. GABAPENTIN [Concomitant]
     Dosage: 100 MG, UNK
  2. PANITUMUMAB [Suspect]
     Dosage: UNK
     Dates: start: 20110210
  3. EPIRUBICIN [Concomitant]
     Dosage: UNK
     Dates: start: 20110210
  4. ZAPAIN [Concomitant]
  5. OXALIPLATIN [Concomitant]
     Dosage: UNK
     Dates: start: 20110210
  6. MORPHINE SULFATE [Concomitant]
     Dosage: 10 MG, UNK
  7. PROCHLORPERAZINE MALEATE [Concomitant]
  8. CAPECITABINE [Concomitant]
     Dosage: UNK
     Dates: start: 20110210

REACTIONS (2)
  - CHEST PAIN [None]
  - VOMITING [None]
